FAERS Safety Report 15281599 (Version 4)
Quarter: 2018Q3

REPORT INFORMATION
  Report Type: Spontaneous
  Country: IT (occurrence: IT)
  Receive Date: 20180815
  Receipt Date: 20180928
  Transmission Date: 20181010
  Serious: Yes (Hospitalization, Other)
  Sender: FDA-Public Use
  Company Number: IT-009507513-1805ITA010307

PATIENT
  Age: 76 Year
  Sex: Female
  Weight: 95 kg

DRUGS (2)
  1. LEVOFLOXACIN. [Suspect]
     Active Substance: LEVOFLOXACIN
     Indication: INFECTION
     Dosage: 500 MG, QOD
     Route: 042
     Dates: start: 20180406, end: 20180501
  2. DAPTOMYCIN. [Suspect]
     Active Substance: DAPTOMYCIN
     Indication: INFECTION
     Dosage: 850 MG, QD
     Route: 042
     Dates: start: 20180406, end: 20180503

REACTIONS (1)
  - Hepatitis acute [Recovering/Resolving]

NARRATIVE: CASE EVENT DATE: 20180502
